FAERS Safety Report 20775323 (Version 1)
Quarter: 2022Q2

REPORT INFORMATION
  Report Type: Spontaneous
  Country: US (occurrence: None)
  Receive Date: 20220502
  Receipt Date: 20220502
  Transmission Date: 20220721
  Serious: Yes (Disabling)
  Sender: FDA-Public Use
  Company Number: None

PATIENT
  Age: 47 Year
  Sex: Male
  Weight: 72 kg

DRUGS (1)
  1. MINOXIDIL [Suspect]
     Active Substance: MINOXIDIL
     Indication: Alopecia
     Dosage: FREQUENCY : AT BEDTIME;?
     Route: 061
     Dates: start: 20161015

REACTIONS (4)
  - Sexual dysfunction [None]
  - Erectile dysfunction [None]
  - Loss of libido [None]
  - Depression [None]

NARRATIVE: CASE EVENT DATE: 20161015
